FAERS Safety Report 11111878 (Version 1)
Quarter: 2015Q2

REPORT INFORMATION
  Report Type: Report from Study
  Country: FR (occurrence: FR)
  Receive Date: 20150514
  Receipt Date: 20150514
  Transmission Date: 20150821
  Serious: Yes (Hospitalization, Other)
  Sender: FDA-Public Use
  Company Number: FR-ROCHE-1164821

PATIENT
  Age: 51 Year
  Sex: Female

DRUGS (4)
  1. ZELITREX [Concomitant]
     Active Substance: VALACYCLOVIR HYDROCHLORIDE
  2. CORTANCYL [Concomitant]
     Active Substance: PREDNISONE
     Route: 065
  3. METHOTREXATE [Concomitant]
     Active Substance: METHOTREXATE
     Dosage: 6 TABLETS WEEKLY
     Route: 065
  4. RITUXIMAB [Suspect]
     Active Substance: RITUXIMAB
     Indication: RHEUMATOID ARTHRITIS
     Dosage: INFUSION OF MABTHERA 1G (D1) ON 19-JUN-2012; INFUSION OF MABTHERA 1G (D15) ON 02-JUL-2012;
     Route: 042
     Dates: start: 20071113

REACTIONS (4)
  - Herpes zoster [Recovered/Resolved]
  - Bronchitis [Recovered/Resolved]
  - Pleuropericarditis [Recovered/Resolved]
  - Mucoepidermoid carcinoma [Unknown]

NARRATIVE: CASE EVENT DATE: 20071118
